FAERS Safety Report 8485523-0 (Version None)
Quarter: 2012Q3

REPORT INFORMATION
  Report Type: 
  Country: None (occurrence: None)
  Receive Date: 20120703
  Receipt Date: 20120629
  Transmission Date: 20120928
  Serious: Yes (Hospitalization)
  Sender: FDA-Public Use
  Company Number: CR-ROCHE-1083429

PATIENT
  Sex: Female

DRUGS (5)
  1. IRBESARTAN [Concomitant]
  2. FUROSEMIDE [Concomitant]
  3. LOVASTATIN [Concomitant]
  4. COREG [Concomitant]
  5. BONIVA [Suspect]
     Indication: OSTEOPOROSIS
     Route: 048
     Dates: start: 20061001

REACTIONS (1)
  - KNEE OPERATION [None]
